FAERS Safety Report 6274682-6 (Version None)
Quarter: 2009Q3

REPORT INFORMATION
  Report Type: 
  Country: None (occurrence: None)
  Receive Date: 20090721
  Receipt Date: 20070410
  Transmission Date: 20100115
  Serious: Yes (Other)
  Sender: FDA-Public Use
  Company Number: US-ASTRAZENECA-2006UW09869

PATIENT
  Age: 23321 Day
  Sex: Female
  Weight: 83.9 kg

DRUGS (18)
  1. SEROQUEL [Suspect]
     Indication: SCHIZOAFFECTIVE DISORDER
     Route: 048
     Dates: start: 20020719
  2. SEROQUEL [Suspect]
     Indication: DEPRESSION
     Route: 048
     Dates: start: 20020719
  3. SEROQUEL [Suspect]
     Indication: PSYCHOTIC DISORDER
     Route: 048
     Dates: start: 20020719
  4. SEROQUEL [Suspect]
     Route: 048
     Dates: start: 20030512, end: 20041005
  5. SEROQUEL [Suspect]
     Route: 048
     Dates: start: 20030512, end: 20041005
  6. SEROQUEL [Suspect]
     Route: 048
     Dates: start: 20030512, end: 20041005
  7. ABILIFY [Concomitant]
     Dates: start: 20010101
  8. ABILIFY [Concomitant]
     Dates: start: 20050603
  9. HALDOL [Concomitant]
  10. THORAZINE [Concomitant]
  11. XANAX [Concomitant]
     Indication: NERVOUSNESS
     Dosage: 0.5 MG-1.5 MG
     Route: 048
     Dates: start: 20020719
  12. XANAX [Concomitant]
     Indication: ANXIETY
     Dosage: 0.5 MG-1.5 MG
     Route: 048
     Dates: start: 20020719
  13. NORVASC [Concomitant]
     Indication: HYPERTENSION
     Dates: start: 20021203
  14. TRAZODONE [Concomitant]
     Dates: start: 20050603
  15. ZOLOFT [Concomitant]
     Indication: SCHIZOAFFECTIVE DISORDER BIPOLAR TYPE
     Dates: start: 19921223
  16. LIPITOR [Concomitant]
     Indication: HYPERCHOLESTEROLAEMIA
     Dates: start: 20021203
  17. BENADRYL [Concomitant]
     Dates: start: 20020719
  18. ATENOLOL [Concomitant]
     Dates: start: 20050603

REACTIONS (2)
  - RETINOPATHY [None]
  - TYPE 2 DIABETES MELLITUS [None]
